FAERS Safety Report 9391938 (Version 2)
Quarter: 2013Q3

REPORT INFORMATION
  Report Type: Spontaneous
  Country: JP (occurrence: JP)
  Receive Date: 20130709
  Receipt Date: 20130801
  Transmission Date: 20140515
  Serious: Yes (Other)
  Sender: FDA-Public Use
  Company Number: CHNY2013JP001436

PATIENT
  Age: 55 Year
  Sex: Female

DRUGS (1)
  1. LAMISIL CREAM [Suspect]
     Dosage: UNK, UNK
     Route: 061

REACTIONS (2)
  - Urticaria [Recovering/Resolving]
  - Skin hypertrophy [Unknown]
